FAERS Safety Report 15759867 (Version 1)
Quarter: 2018Q4

REPORT INFORMATION
  Report Type: Spontaneous
  Country: US (occurrence: US)
  Receive Date: 20181224
  Receipt Date: 20181224
  Transmission Date: 20190205
  Serious: Yes (Other)
  Sender: FDA-Public Use
  Company Number: None

PATIENT
  Age: 33 Year
  Sex: Female
  Weight: 74.84 kg

DRUGS (1)
  1. JAYDESS, 13.5 MG [Suspect]
     Active Substance: LEVONORGESTREL
     Indication: DYSMENORRHOEA
     Route: 019

REACTIONS (4)
  - Complication of device insertion [None]
  - Headache [None]
  - Pain [None]
  - Migraine [None]

NARRATIVE: CASE EVENT DATE: 20181221
